FAERS Safety Report 25649709 (Version 1)
Quarter: 2025Q3

REPORT INFORMATION
  Report Type: Report from Study
  Country: US (occurrence: US)
  Receive Date: 20250806
  Receipt Date: 20250806
  Transmission Date: 20251020
  Serious: Yes (Hospitalization)
  Sender: MYLAN
  Company Number: US-MYLANLABS-2025M1065606

PATIENT
  Age: 49 Year
  Sex: Female

DRUGS (16)
  1. PROPRANOLOL HYDROCHLORIDE [Suspect]
     Active Substance: PROPRANOLOL HYDROCHLORIDE
     Indication: Product used for unknown indication
  2. PROPRANOLOL HYDROCHLORIDE [Suspect]
     Active Substance: PROPRANOLOL HYDROCHLORIDE
     Route: 048
  3. PROPRANOLOL HYDROCHLORIDE [Suspect]
     Active Substance: PROPRANOLOL HYDROCHLORIDE
     Route: 048
  4. PROPRANOLOL HYDROCHLORIDE [Suspect]
     Active Substance: PROPRANOLOL HYDROCHLORIDE
  5. BENZONATATE [Suspect]
     Active Substance: BENZONATATE
     Indication: Product used for unknown indication
  6. BENZONATATE [Suspect]
     Active Substance: BENZONATATE
     Route: 048
  7. BENZONATATE [Suspect]
     Active Substance: BENZONATATE
     Route: 048
  8. BENZONATATE [Suspect]
     Active Substance: BENZONATATE
  9. NABUMETONE [Suspect]
     Active Substance: NABUMETONE
     Indication: Product used for unknown indication
  10. NABUMETONE [Suspect]
     Active Substance: NABUMETONE
     Route: 048
  11. NABUMETONE [Suspect]
     Active Substance: NABUMETONE
     Route: 048
  12. NABUMETONE [Suspect]
     Active Substance: NABUMETONE
  13. PRAVASTATIN [Suspect]
     Active Substance: PRAVASTATIN
     Indication: Product used for unknown indication
  14. PRAVASTATIN [Suspect]
     Active Substance: PRAVASTATIN
     Route: 048
  15. PRAVASTATIN [Suspect]
     Active Substance: PRAVASTATIN
     Route: 048
  16. PRAVASTATIN [Suspect]
     Active Substance: PRAVASTATIN

REACTIONS (1)
  - Intentional product use issue [Unknown]
